FAERS Safety Report 13127293 (Version 1)
Quarter: 2017Q1

REPORT INFORMATION
  Report Type: Spontaneous
  Country: US (occurrence: US)
  Receive Date: 20170118
  Receipt Date: 20170118
  Transmission Date: 20170428
  Serious: Yes (Hospitalization)
  Sender: FDA-Public Use
  Company Number: US-ROCHE-1791871

PATIENT
  Sex: Male

DRUGS (2)
  1. RITUXAN [Suspect]
     Active Substance: RITUXIMAB
     Indication: HAIRY CELL LEUKAEMIA
     Route: 042
  2. CLADRIBINE. [Concomitant]
     Active Substance: CLADRIBINE

REACTIONS (2)
  - Hypertension [Recovered/Resolved]
  - Pyrexia [Recovered/Resolved]
